FAERS Safety Report 5979901-9 (Version None)
Quarter: 2008Q4

REPORT INFORMATION
  Report Type: 
  Country: None (occurrence: None)
  Receive Date: 20081126
  Receipt Date: 20081112
  Transmission Date: 20090506
  Serious: Yes (Death)
  Sender: FDA-Public Use
  Company Number: 2008AL011912

PATIENT
  Age: 74 Year
  Sex: Male

DRUGS (8)
  1. IBUPROFEN TABLETS [Suspect]
     Dosage: 400 MG; PO
     Route: 048
  2. AMLODIPINE BESYLATE [Suspect]
     Dosage: 5 MG; QD; PO
     Route: 048
  3. PERINDOPRIL [Concomitant]
  4. SIMVASTATIN [Concomitant]
  5. OMEPRAZOLE [Concomitant]
  6. ACETYLSALICYLIC ACID SRT [Concomitant]
  7. LEVOTHYROXINE SODIUM [Concomitant]
  8. AMOXICILLIN [Concomitant]

REACTIONS (11)
  - ACUTE RESPIRATORY DISTRESS SYNDROME [None]
  - ALVEOLITIS [None]
  - COUGH [None]
  - DERMATOMYOSITIS [None]
  - DRUG ERUPTION [None]
  - HAEMOPTYSIS [None]
  - OROPHARYNGEAL PAIN [None]
  - RENAL FAILURE [None]
  - RENAL FAILURE ACUTE [None]
  - RESPIRATORY FAILURE [None]
  - VASCULITIS [None]
